FAERS Safety Report 20598911 (Version 1)
Quarter: 2022Q1

REPORT INFORMATION
  Report Type: Report from Study
  Country: IT (occurrence: None)
  Receive Date: 20220315
  Receipt Date: 20220315
  Transmission Date: 20220424
  Serious: Yes (Other)
  Sender: FDA-Public Use
  Company Number: 2022A102107

PATIENT
  Age: 24 Year
  Sex: Female

DRUGS (6)
  1. SEROQUEL [Suspect]
     Active Substance: QUETIAPINE FUMARATE
     Dosage: 1.0DF ONCE/SINGLE ADMINISTRATION
     Route: 048
     Dates: start: 20210731, end: 20210731
  2. RIVOTRIL [Suspect]
     Active Substance: CLONAZEPAM
     Dosage: 6.0DF ONCE/SINGLE ADMINISTRATION
     Route: 048
     Dates: start: 20210731, end: 20210731
  3. GABAPENTIN [Suspect]
     Active Substance: GABAPENTIN
     Dosage: 3.0DF ONCE/SINGLE ADMINISTRATION
     Route: 048
     Dates: start: 20210731, end: 20210731
  4. TAVOR (LORAZEPAM) [Suspect]
     Active Substance: LORAZEPAM
     Dosage: 4.0DF ONCE/SINGLE ADMINISTRATION
     Route: 048
     Dates: start: 20210731, end: 20210731
  5. LITHIUM SULFATE [Suspect]
     Active Substance: LITHIUM SULFATE
     Route: 048
     Dates: start: 20210731, end: 20210731
  6. TEGRETOL [Suspect]
     Active Substance: CARBAMAZEPINE
     Dosage: 1.0DF ONCE/SINGLE ADMINISTRATION
     Route: 048
     Dates: start: 20210731, end: 20210731

REACTIONS (1)
  - Sopor [Recovering/Resolving]

NARRATIVE: CASE EVENT DATE: 20210731
